FAERS Safety Report 14727387 (Version 2)
Quarter: 2018Q2

REPORT INFORMATION
  Report Type: Report from Study
  Country: US (occurrence: US)
  Receive Date: 20180406
  Receipt Date: 20180421
  Transmission Date: 20180711
  Serious: No
  Sender: FDA-Public Use
  Company Number: US-B.I. PHARMACEUTICALS,INC./RIDGEFIELD-2018-BI-018599

PATIENT
  Age: 38 Year
  Sex: Female

DRUGS (1)
  1. OFEV [Suspect]
     Active Substance: NINTEDANIB
     Indication: IDIOPATHIC PULMONARY FIBROSIS
     Dosage: ;  FORM STRENGTH: 150 MG;  ACTION(S) TAKEN WITH PRODUCT: DOSE NOT CHANGED
     Route: 048
     Dates: start: 20180301

REACTIONS (7)
  - Acne [Not Recovered/Not Resolved]
  - Productive cough [Unknown]
  - Diarrhoea [Unknown]
  - Nasopharyngitis [Unknown]
  - Cough [Unknown]
  - Dyspnoea exertional [Unknown]
  - Pneumonia [Unknown]

NARRATIVE: CASE EVENT DATE: 20180311
